FAERS Safety Report 9349795 (Version 2)
Quarter: 2013Q2

REPORT INFORMATION
  Report Type: Spontaneous
  Country: BE (occurrence: BE)
  Receive Date: 20130614
  Receipt Date: 20130621
  Transmission Date: 20140414
  Serious: Yes (Life-Threatening, Hospitalization, Disabling, Other)
  Sender: FDA-Public Use
  Company Number: BE-ASTRAZENECA-2013SE42607

PATIENT
  Age: 13267 Day
  Sex: Female
  Weight: 100 kg

DRUGS (5)
  1. BRILIQUE [Suspect]
     Indication: ACUTE MYOCARDIAL INFARCTION
     Route: 048
     Dates: start: 20130419
  2. COVERSYL [Concomitant]
     Indication: HYPERTENSION
     Route: 048
     Dates: start: 20130419
  3. ASAFLOW [Concomitant]
     Indication: ANTICOAGULANT THERAPY
     Route: 048
     Dates: start: 20130419
  4. LIPITOR [Concomitant]
     Route: 048
     Dates: start: 20130419
  5. ELTHYRONE [Concomitant]
     Indication: THYROID DISORDER
     Route: 048

REACTIONS (3)
  - Thrombosis in device [Recovered/Resolved with Sequelae]
  - Infarction [Recovered/Resolved with Sequelae]
  - Drug ineffective [Unknown]
